FAERS Safety Report 7799246-4 (Version None)
Quarter: 2011Q4

REPORT INFORMATION
  Report Type: 
  Country: None (occurrence: None)
  Receive Date: 20111006
  Receipt Date: 20110224
  Transmission Date: 20120403
  Serious: No
  Sender: FDA-Public Use
  Company Number: US-GLAXOSMITHKLINE-A0862446A

PATIENT
  Age: 12 Year
  Sex: Female

DRUGS (4)
  1. TAZORAC [Concomitant]
  2. AMOXICILLIN [Concomitant]
  3. ORENCIA [Concomitant]
  4. DUAC [Suspect]
     Indication: ACNE
     Dosage: 1APP PER DAY
     Route: 061

REACTIONS (1)
  - DRUG INEFFECTIVE [None]
